FAERS Safety Report 21893009 (Version 1)
Quarter: 2023Q1

REPORT INFORMATION
  Report Type: Spontaneous
  Country: US (occurrence: US)
  Receive Date: 20230120
  Receipt Date: 20230120
  Transmission Date: 20230418
  Serious: No
  Sender: FDA-Public Use
  Company Number: US-009507513-2301USA007158

PATIENT
  Age: 60 Year
  Sex: Male
  Weight: 73.48 kg

DRUGS (17)
  1. KEYTRUDA [Suspect]
     Active Substance: PEMBROLIZUMAB
  2. LENVATINIB MESYLATE [Suspect]
     Active Substance: LENVATINIB MESYLATE
     Indication: Renal cancer
     Dosage: 20 MILLIGRAM, QD
     Route: 048
     Dates: start: 20220102
  3. ALLOPURINOL [Concomitant]
     Active Substance: ALLOPURINOL
  4. AMOXICILLIN [Concomitant]
     Active Substance: AMOXICILLIN
  5. COREG [Concomitant]
     Active Substance: CARVEDILOL
  6. MORNIFLUMATE [Concomitant]
     Active Substance: MORNIFLUMATE
  7. FLUTICASONE [Concomitant]
     Active Substance: FLUTICASONE
  8. NORCO [Concomitant]
     Active Substance: ACETAMINOPHEN\HYDROCODONE BITARTRATE
  9. LATANOPROST [Concomitant]
     Active Substance: LATANOPROST
  10. LEVOTHYROXINE [Concomitant]
     Active Substance: LEVOTHYROXINE
  11. LOKELMA [Concomitant]
     Active Substance: SODIUM ZIRCONIUM CYCLOSILICATE
  12. MAGOX [Concomitant]
  13. MYFORTIC [Concomitant]
     Active Substance: MYCOPHENOLATE SODIUM
  14. PREDNISONE [Concomitant]
     Active Substance: PREDNISONE
  15. PROGRAF [Concomitant]
     Active Substance: TACROLIMUS
  16. VITAMIN B12 [Concomitant]
     Active Substance: CYANOCOBALAMIN
  17. VITAMIN D3 [Concomitant]
     Active Substance: CHOLECALCIFEROL

REACTIONS (4)
  - Decreased appetite [Unknown]
  - Diarrhoea [Unknown]
  - Abdominal discomfort [Unknown]
  - Pruritus [Unknown]

NARRATIVE: CASE EVENT DATE: 20230106
